FAERS Safety Report 7863180-1 (Version None)
Quarter: 2011Q4

REPORT INFORMATION
  Report Type: 
  Country: None (occurrence: None)
  Receive Date: 20111027
  Receipt Date: 20101129
  Transmission Date: 20120403
  Serious: No
  Sender: FDA-Public Use
  Company Number: US-AMGEN-USASP2010006624

PATIENT
  Age: 50 Year
  Sex: Female

DRUGS (3)
  1. METHOTREXATE [Concomitant]
  2. ENBREL [Suspect]
     Indication: RHEUMATOID ARTHRITIS
     Dosage: 50 MG, QWK
     Dates: start: 20101026
  3. ENBREL [Suspect]
     Indication: PALINDROMIC RHEUMATISM

REACTIONS (5)
  - RHINORRHOEA [None]
  - FATIGUE [None]
  - PAIN IN EXTREMITY [None]
  - LACRIMATION INCREASED [None]
  - DIARRHOEA [None]
